FAERS Safety Report 22088011 (Version 2)
Quarter: 2023Q1

REPORT INFORMATION
  Report Type: Spontaneous
  Country: US (occurrence: US)
  Receive Date: 20230313
  Receipt Date: 20230317
  Transmission Date: 20230418
  Serious: No
  Sender: FDA-Public Use
  Company Number: US-002147023-NVSC2023US053947

PATIENT

DRUGS (1)
  1. OXALIPLATIN [Suspect]
     Active Substance: OXALIPLATIN
     Indication: Product used for unknown indication
     Dosage: UNK (100MG/20ML)
     Route: 065

REACTIONS (5)
  - Throat irritation [Unknown]
  - Lip swelling [Unknown]
  - Pruritus [Unknown]
  - Dyspnoea [Unknown]
  - Flushing [Unknown]
